FAERS Safety Report 18094295 (Version 1)
Quarter: 2020Q3

REPORT INFORMATION
  Report Type: Spontaneous
  Country: US (occurrence: US)
  Receive Date: 20200730
  Receipt Date: 20200730
  Transmission Date: 20201103
  Serious: Yes (Hospitalization, Other)
  Sender: FDA-Public Use
  Company Number: US-PFIZER INC-2020287304

PATIENT
  Age: 70 Year
  Sex: Female
  Weight: 77 kg

DRUGS (3)
  1. FASLODEX [Concomitant]
     Active Substance: FULVESTRANT
     Dosage: UNK
  2. IBRANCE [Suspect]
     Active Substance: PALBOCICLIB
     Dosage: 100 MG
     Dates: start: 20200723, end: 202007
  3. IBRANCE [Suspect]
     Active Substance: PALBOCICLIB
     Indication: BREAST CANCER METASTATIC
     Dosage: 125 MG, 1X/DAY
     Route: 048
     Dates: start: 20200625, end: 2020

REACTIONS (9)
  - Microvascular cranial nerve palsy [Unknown]
  - Body temperature increased [Recovered/Resolved]
  - White blood cell count decreased [Unknown]
  - Platelet count decreased [Unknown]
  - Diplopia [Not Recovered/Not Resolved]
  - Headache [Recovered/Resolved]
  - Taste disorder [Unknown]
  - Neutropenia [Unknown]
  - Decreased appetite [Unknown]

NARRATIVE: CASE EVENT DATE: 2020
